FAERS Safety Report 8436046-6 (Version None)
Quarter: 2012Q2

REPORT INFORMATION
  Report Type: 
  Country: None (occurrence: None)
  Receive Date: 20120614
  Receipt Date: 20120607
  Transmission Date: 20120825
  Serious: Yes (Hospitalization)
  Sender: FDA-Public Use
  Company Number: FR-ROCHE-1076911

PATIENT
  Sex: Female
  Weight: 58 kg

DRUGS (11)
  1. KEPPRA [Concomitant]
  2. NEURONTIN [Concomitant]
  3. IRBESARTAN [Concomitant]
  4. MORPHINE SULFATE [Concomitant]
  5. FORLAX (FRANCE) [Concomitant]
  6. AVASTIN [Suspect]
     Indication: METASTATIC RENAL CELL CARCINOMA
     Route: 058
     Dates: start: 20090717, end: 20101109
  7. EFFEXOR [Concomitant]
  8. ACETAMINOPHEN [Concomitant]
  9. DURAGESIC-100 [Concomitant]
  10. LOVENOX [Concomitant]
  11. ROFERON-A [Suspect]
     Indication: METASTATIC RENAL CELL CARCINOMA
     Route: 042
     Dates: start: 20091023, end: 20101109

REACTIONS (2)
  - POSTERIOR REVERSIBLE ENCEPHALOPATHY SYNDROME [None]
  - ATELECTASIS [None]
